FAERS Safety Report 20975461 (Version 1)
Quarter: 2022Q2

REPORT INFORMATION
  Report Type: Spontaneous
  Country: US (occurrence: US)
  Receive Date: 20220617
  Receipt Date: 20220617
  Transmission Date: 20220720
  Serious: No
  Sender: FDA-Public Use
  Company Number: US-BRISTOL-MYERS SQUIBB COMPANY-2022-054535

PATIENT
  Age: 51 Year
  Sex: Female

DRUGS (1)
  1. ORENCIA [Suspect]
     Active Substance: ABATACEPT
     Indication: Rheumatoid arthritis
     Dosage: WEEKLY
     Route: 058
     Dates: start: 20190103

REACTIONS (2)
  - Pain [Unknown]
  - Pain in extremity [Unknown]
